FAERS Safety Report 14025977 (Version 2)
Quarter: 2017Q4

REPORT INFORMATION
  Report Type: Spontaneous
  Country: US (occurrence: US)
  Receive Date: 20170929
  Receipt Date: 20171009
  Transmission Date: 20180321
  Serious: Yes (Death, Other)
  Sender: FDA-Public Use
  Company Number: US-009507513-1709USA012404

PATIENT
  Age: 11 Year
  Sex: Female

DRUGS (1)
  1. NOXAFIL [Suspect]
     Active Substance: POSACONAZOLE
     Indication: ANTIFUNGAL PROPHYLAXIS
     Dosage: 15.6 MG/KG PER DAY
     Route: 048

REACTIONS (3)
  - Fungal infection [Fatal]
  - Off label use [Unknown]
  - Drug level below therapeutic [Unknown]
